FAERS Safety Report 8201082-1 (Version None)
Quarter: 2012Q1

REPORT INFORMATION
  Report Type: 
  Country: None (occurrence: None)
  Receive Date: 20120312
  Receipt Date: 20111219
  Transmission Date: 20120608
  Serious: No
  Sender: FDA-Public Use
  Company Number: US-ABBOTT-11P-163-0884725-00

PATIENT
  Sex: Female
  Weight: 40.86 kg

DRUGS (3)
  1. LUPRON DEPOT [Suspect]
     Indication: ENDOMETRIOSIS
     Dates: start: 20111215
  2. NIFEDIPINE [Concomitant]
     Indication: MIGRAINE
  3. NORCO [Concomitant]
     Indication: PAIN PROPHYLAXIS

REACTIONS (1)
  - ARTHRALGIA [None]
